FAERS Safety Report 7811216-6 (Version None)
Quarter: 2011Q4

REPORT INFORMATION
  Report Type: 
  Country: None (occurrence: None)
  Receive Date: 20111013
  Receipt Date: 20110725
  Transmission Date: 20120403
  Serious: Yes (Disabling)
  Sender: FDA-Public Use
  Company Number: BR-ASTRAZENECA-2011SE44789

PATIENT
  Age: 84 Year
  Sex: Female

DRUGS (4)
  1. SEROQUEL [Suspect]
     Route: 048
  2. SEROQUEL [Suspect]
     Route: 048
  3. SEROQUEL [Suspect]
     Indication: DEMENTIA ALZHEIMER'S TYPE
     Route: 048
  4. SEROQUEL [Suspect]
     Route: 048

REACTIONS (5)
  - RESTLESSNESS [None]
  - FALL [None]
  - OFF LABEL USE [None]
  - PELVIC FRACTURE [None]
  - INSOMNIA [None]
